FAERS Safety Report 9866149 (Version 1)
Quarter: 2014Q1

REPORT INFORMATION
  Report Type: Spontaneous
  Country: NO (occurrence: NO)
  Receive Date: 20140203
  Receipt Date: 20140203
  Transmission Date: 20141002
  Serious: Yes (Hospitalization)
  Sender: FDA-Public Use
  Company Number: NO-009507513-1401NOR013073

PATIENT
  Age: 86 Year
  Sex: Female

DRUGS (6)
  1. ALENDRONATE SODIUM [Suspect]
     Indication: OSTEOPOROSIS
     Dosage: 70 MG, QW
     Route: 048
  2. IMOVANE [Concomitant]
     Dosage: 3.75 MG, QD
     Route: 048
  3. CALCIGRAN FORTE [Concomitant]
     Dosage: UNK, QOD
     Route: 048
  4. CIPRALEX [Concomitant]
     Dosage: 5 MG, QD
     Route: 048
  5. ARICEPT [Concomitant]
     Dosage: 5 MG, UNK
     Route: 048
  6. SIMVASTATIN [Concomitant]
     Indication: HYPERCHOLESTEROLAEMIA
     Dosage: 20 MG, QD
     Route: 048

REACTIONS (1)
  - Osteomyelitis [Recovered/Resolved]
